FAERS Safety Report 5003321-7 (Version None)
Quarter: 2006Q2

REPORT INFORMATION
  Report Type: 
  Country: None (occurrence: None)
  Receive Date: 20060511
  Receipt Date: 20060502
  Transmission Date: 20061013
  Serious: Yes (Death)
  Sender: FDA-Public Use
  Company Number: 2006-142211-NL

PATIENT
  Age: 52 Year
  Sex: Female

DRUGS (1)
  1. MIRTAZAPINE [Suspect]

REACTIONS (4)
  - ACCIDENTAL DEATH [None]
  - ACCIDENTAL OVERDOSE [None]
  - ALCOHOLISM [None]
  - HEPATOCELLULAR DAMAGE [None]
